FAERS Safety Report 7800069-8 (Version None)
Quarter: 2011Q4

REPORT INFORMATION
  Report Type: 
  Country: None (occurrence: None)
  Receive Date: 20111006
  Receipt Date: 20111006
  Transmission Date: 20120403
  Serious: Yes (Life-Threatening, Disabling, Other)
  Sender: FDA-Public Use
  Company Number: JP-PFIZER INC-2008099117

PATIENT
  Age: 60 Year
  Sex: Female

DRUGS (17)
  1. ETHAMBUTOL HYDROCHLORIDE [Concomitant]
     Dosage: UNK
     Dates: start: 20070701, end: 20071001
  2. CARVEDILOL [Interacting]
     Indication: HYPERTENSION
     Dosage: UNK
     Dates: start: 20080201
  3. ETHAMBUTOL HYDROCHLORIDE [Concomitant]
     Indication: DISSEMINATED TUBERCULOSIS
     Dosage: UNK
     Dates: start: 20070201, end: 20070501
  4. STREPTOMYCIN [Concomitant]
     Indication: DISSEMINATED TUBERCULOSIS
     Dates: start: 20070501
  5. DIOVAN [Concomitant]
     Dosage: UNK
     Dates: start: 20070101
  6. LISINOPRIL [Concomitant]
     Dosage: UNK
     Dates: start: 20070101
  7. RIFADIN [Interacting]
     Dosage: UNK
     Dates: start: 20070701
  8. ALDOMET [Concomitant]
     Dosage: UNK
     Dates: start: 20070101
  9. ISONIAZID [Interacting]
     Indication: DISSEMINATED TUBERCULOSIS
     Dosage: UNK
     Dates: start: 20070201, end: 20070501
  10. ISONIAZID [Interacting]
     Dosage: UNK
     Dates: start: 20070701
  11. ACECOL [Interacting]
     Indication: HYPERTENSION
     Dosage: UNK
     Dates: start: 20080201
  12. DOXAZOSIN MESYLATE [Concomitant]
     Dosage: UNK
     Dates: start: 20070101
  13. AMLODIPINE [Interacting]
     Dosage: UNK
  14. CELECTOL [Interacting]
     Dosage: UNK
     Dates: start: 20080401
  15. PYRAZINAMIDE [Suspect]
     Indication: DISSEMINATED TUBERCULOSIS
     Dosage: UNK
     Dates: start: 20070201, end: 20070501
  16. RIFADIN [Interacting]
     Indication: DISSEMINATED TUBERCULOSIS
     Dates: start: 20070201, end: 20070501
  17. ENALAPRIL MALEATE [Suspect]
     Dosage: UNK
     Dates: start: 20070101

REACTIONS (5)
  - BLOOD PRESSURE INADEQUATELY CONTROLLED [None]
  - HYPERTENSIVE ENCEPHALOPATHY [None]
  - DRUG INTERACTION [None]
  - CEREBELLAR HAEMORRHAGE [None]
  - HEPATIC FAILURE [None]
